FAERS Safety Report 9433838 (Version 1)
Quarter: 2013Q3

REPORT INFORMATION
  Report Type: Spontaneous
  Country: US (occurrence: US)
  Receive Date: 20130731
  Receipt Date: 20130731
  Transmission Date: 20140515
  Serious: No
  Sender: FDA-Public Use
  Company Number: US-ASTRAZENECA-2013SE48592

PATIENT
  Age: 48 Year
  Sex: Male
  Weight: 95.3 kg

DRUGS (6)
  1. QUETIAPINE [Suspect]
     Indication: BIPOLAR DISORDER
     Route: 048
     Dates: start: 2013
  2. QUETIAPINE [Suspect]
     Indication: AFFECTIVE DISORDER
     Route: 048
     Dates: start: 2013
  3. DIABETES PILLS [Concomitant]
  4. PILLS FOR SUGARS [Concomitant]
  5. BIPOLAR PILLS [Concomitant]
  6. PARKINSON PILLS [Concomitant]

REACTIONS (2)
  - Headache [Unknown]
  - Head discomfort [Unknown]
